FAERS Safety Report 11835441 (Version 1)
Quarter: 2015Q4

REPORT INFORMATION
  Report Type: Spontaneous
  Country: CN (occurrence: CN)
  Receive Date: 20151215
  Receipt Date: 20151215
  Transmission Date: 20160305
  Serious: Yes (Other)
  Sender: FDA-Public Use
  Company Number: CN-SUN PHARMACEUTICAL INDUSTRIES LTD-2015R1-107761

PATIENT
  Age: 43 Year
  Sex: Female

DRUGS (1)
  1. PROPYLTHIOURACIL. [Suspect]
     Active Substance: PROPYLTHIOURACIL
     Indication: PRODUCT USED FOR UNKNOWN INDICATION
     Dosage: 150 MG, DAILY
     Route: 065

REACTIONS (3)
  - Osteonecrosis [Not Recovered/Not Resolved]
  - Stomatitis [Not Recovered/Not Resolved]
  - Agranulocytosis [Not Recovered/Not Resolved]
